FAERS Safety Report 15725360 (Version 1)
Quarter: 2018Q4

REPORT INFORMATION
  Report Type: Spontaneous
  Country: FR (occurrence: FR)
  Receive Date: 20181215
  Receipt Date: 20181215
  Transmission Date: 20190205
  Serious: Yes (Hospitalization)
  Sender: FDA-Public Use
  Company Number: FR-TEVA-2018-FR-986274

PATIENT
  Age: 55 Year
  Sex: Female
  Weight: 66 kg

DRUGS (3)
  1. BELUSTINE [Suspect]
     Active Substance: LOMUSTINE
     Indication: GLIOMA
     Route: 048
     Dates: start: 20180306
  2. VINCRISTINE TEVA [Suspect]
     Active Substance: VINCRISTINE
     Indication: GLIOMA
     Route: 041
     Dates: start: 20180306, end: 20181005
  3. NATULAN [Concomitant]
     Active Substance: PROCARBAZINE HYDROCHLORIDE
     Route: 041

REACTIONS (2)
  - Amyotrophy [Not Recovered/Not Resolved]
  - Myalgia [Not Recovered/Not Resolved]

NARRATIVE: CASE EVENT DATE: 2018
